FAERS Safety Report 6959268-X (Version None)
Quarter: 2010Q3

REPORT INFORMATION
  Report Type: 
  Country: None (occurrence: None)
  Receive Date: 20100831
  Receipt Date: 20100803
  Transmission Date: 20110219
  Serious: No
  Sender: FDA-Public Use
  Company Number: US-PFIZER INC-2010097938

PATIENT

DRUGS (1)
  1. FLAGYL [Suspect]
     Dosage: UNK

REACTIONS (1)
  - IRRITABILITY [None]
